FAERS Safety Report 18943242 (Version 1)
Quarter: 2021Q1

REPORT INFORMATION
  Report Type: Spontaneous
  Country: US (occurrence: US)
  Receive Date: 20210226
  Receipt Date: 20210226
  Transmission Date: 20210420
  Serious: Yes (Hospitalization)
  Sender: FDA-Public Use
  Company Number: US-JNJFOC-20210234412

PATIENT
  Age: 25 Year
  Sex: Female
  Weight: 85 kg

DRUGS (2)
  1. TYLENOL EXTRA STRENGTH [Suspect]
     Active Substance: ACETAMINOPHEN
     Indication: ABDOMINAL DISCOMFORT
  2. TYLENOL EXTRA STRENGTH [Suspect]
     Active Substance: ACETAMINOPHEN
     Indication: HEADACHE
     Dosage: 25?30 DOSAGE FORM
     Route: 065

REACTIONS (6)
  - Premature labour [Recovering/Resolving]
  - Foetal distress syndrome [Recovering/Resolving]
  - Exposure during pregnancy [Unknown]
  - Product use in unapproved indication [Unknown]
  - Hepatic failure [Recovering/Resolving]
  - Overdose [Unknown]
